FAERS Safety Report 25491758 (Version 2)
Quarter: 2025Q3

REPORT INFORMATION
  Report Type: Report from Study
  Country: US (occurrence: US)
  Receive Date: 20250630
  Receipt Date: 20250704
  Transmission Date: 20251020
  Serious: Yes (Other)
  Sender: ABBVIE
  Company Number: US-ABBVIE-6342973

PATIENT
  Age: 55 Year
  Sex: Male
  Weight: 81.646 kg

DRUGS (2)
  1. HUMIRA [Suspect]
     Active Substance: ADALIMUMAB
     Indication: Colitis ulcerative
     Dosage: FORM STRENGTH: 40 MILLIGRAM
     Route: 058
     Dates: start: 202410
  2. IRON [Concomitant]
     Active Substance: IRON
     Indication: Mineral supplementation

REACTIONS (7)
  - Blindness [Not Recovered/Not Resolved]
  - Infection susceptibility increased [Not Recovered/Not Resolved]
  - Tooth demineralisation [Unknown]
  - Immunodeficiency [Not Recovered/Not Resolved]
  - Injection site haemorrhage [Not Recovered/Not Resolved]
  - Gingival swelling [Recovering/Resolving]
  - Root canal infection [Not Recovered/Not Resolved]

NARRATIVE: CASE EVENT DATE: 20240101
